FAERS Safety Report 23882833 (Version 1)
Quarter: 2024Q2

REPORT INFORMATION
  Report Type: Report from Study
  Country: GB (occurrence: GB)
  Receive Date: 20240522
  Receipt Date: 20240522
  Transmission Date: 20240716
  Serious: Yes (Other)
  Sender: FDA-Public Use
  Company Number: GB-002147023-NVSC2024GB107483

PATIENT
  Sex: Female

DRUGS (1)
  1. KESIMPTA [Suspect]
     Active Substance: OFATUMUMAB
     Indication: Multiple sclerosis
     Dosage: 20 MG, OTHER (INJECT 20MG (ONE PEN) SUBCUTANEOUSLY ON WEEKS 0, 1, 2 AND 4 FOLLOWED BY ONCE MONTHLY D
     Route: 058

REACTIONS (1)
  - Lower respiratory tract infection [Unknown]
